FAERS Safety Report 11433316 (Version 1)
Quarter: 2015Q3

REPORT INFORMATION
  Report Type: Spontaneous
  Country: US (occurrence: US)
  Receive Date: 20150830
  Receipt Date: 20150830
  Transmission Date: 20151125
  Serious: No
  Sender: FDA-Public Use
  Company Number: US-ASTRAZENECA-2015SE80882

PATIENT
  Sex: Male

DRUGS (2)
  1. OPIODS [Interacting]
     Active Substance: UNSPECIFIED INGREDIENT
     Route: 065
  2. MOVANTIK [Suspect]
     Active Substance: NALOXEGOL OXALATE
     Route: 048

REACTIONS (2)
  - Drug interaction [Unknown]
  - Pain [Unknown]
